FAERS Safety Report 7942569-6 (Version None)
Quarter: 2011Q4

REPORT INFORMATION
  Report Type: 
  Country: None (occurrence: None)
  Receive Date: 20111128
  Receipt Date: 20111117
  Transmission Date: 20120403
  Serious: Yes (Hospitalization)
  Sender: FDA-Public Use
  Company Number: FR-GLAXOSMITHKLINE-B0764864A

PATIENT
  Sex: Male

DRUGS (2)
  1. PAZOPANIB [Suspect]
     Indication: NEOPLASM
     Route: 048
  2. BEVACIZUMAB [Suspect]
     Indication: NEOPLASM

REACTIONS (3)
  - ABDOMINAL PAIN [None]
  - PANCREATITIS ACUTE [None]
  - DISEASE PROGRESSION [None]
